FAERS Safety Report 4747829-8 (Version None)
Quarter: 2005Q3

REPORT INFORMATION
  Report Type: 
  Country: None (occurrence: None)
  Receive Date: 20050816
  Receipt Date: 20050726
  Transmission Date: 20060218
  Serious: Yes (Hospitalization)
  Sender: FDA-Public Use
  Company Number: 02100-USA-03-0470

PATIENT
  Age: 65 Year
  Sex: Female

DRUGS (20)
  1. PLETAL [Suspect]
     Indication: INTERMITTENT CLAUDICATION
     Dosage: 100 MG BID ORAL
     Route: 048
     Dates: start: 20020412, end: 20030327
  2. PLETAL [Suspect]
     Indication: INTERMITTENT CLAUDICATION
     Dosage: 50 MG BID ORAL
     Route: 048
     Dates: start: 20020412, end: 20030327
  3. PLETAL [Suspect]
     Indication: INTERMITTENT CLAUDICATION
     Dosage: 100 MG BID ORAL
     Route: 048
     Dates: start: 20030523
  4. PLETAL [Suspect]
     Indication: INTERMITTENT CLAUDICATION
     Dosage: 50 MG BID ORAL
     Route: 048
     Dates: start: 20030523
  5. NORVASC [Concomitant]
  6. ASPIRIN [Concomitant]
  7. METOPROLOL [Concomitant]
  8. ZYRTEC [Concomitant]
  9. MYLANTA [Concomitant]
  10. COZAAR [Concomitant]
  11. LASIX [Concomitant]
  12. CELEXA [Concomitant]
  13. VITAMIN E [Concomitant]
  14. LEVOXYL [Concomitant]
  15. NEXIUM [Concomitant]
  16. ADVAIR DISKUS 100/50 [Concomitant]
  17. NASONEX [Concomitant]
  18. NITROGLYCERIN [Concomitant]
  19. WELCHOL [Concomitant]
  20. QUININE SULFATE [Concomitant]

REACTIONS (10)
  - ANAEMIA [None]
  - ANGINA PECTORIS [None]
  - ATHEROSCLEROSIS [None]
  - DYSPNOEA [None]
  - FATIGUE [None]
  - LARGE INTESTINAL HAEMORRHAGE [None]
  - LOWER GASTROINTESTINAL HAEMORRHAGE [None]
  - MESENTERIC OCCLUSION [None]
  - MYOCARDIAL ISCHAEMIA [None]
  - SINUS TACHYCARDIA [None]
